FAERS Safety Report 23480130 (Version 2)
Quarter: 2024Q1

REPORT INFORMATION
  Report Type: Spontaneous
  Country: FR (occurrence: FR)
  Receive Date: 20240205
  Receipt Date: 20240322
  Transmission Date: 20240409
  Serious: Yes (Other)
  Sender: FDA-Public Use
  Company Number: FR-ALMUS S.R.L.-FR-NIC-24-00250

PATIENT
  Age: 28 Year
  Sex: Male

DRUGS (1)
  1. ARIPIPRAZOLE [Suspect]
     Active Substance: ARIPIPRAZOLE
     Indication: Schizophrenia
     Dosage: 30 MILLIGRAM, ONCE A DAY
     Route: 048

REACTIONS (4)
  - Schizophrenia [Recovering/Resolving]
  - Antipsychotic drug level below therapeutic [Recovering/Resolving]
  - Treatment noncompliance [Unknown]
  - Loss of therapeutic response [Unknown]
